FAERS Safety Report 8248175-0 (Version None)
Quarter: 2012Q1

REPORT INFORMATION
  Report Type: 
  Country: None (occurrence: None)
  Receive Date: 20120330
  Receipt Date: 20120322
  Transmission Date: 20120608
  Serious: Yes (Death, Hospitalization, Other)
  Sender: FDA-Public Use
  Company Number: DE-JNJFOC-20111208396

PATIENT
  Sex: Female
  Weight: 72 kg

DRUGS (15)
  1. THYBON [Concomitant]
  2. LEVOTHYROXINE SODIUM [Concomitant]
  3. AMIODARONE HCL [Concomitant]
  4. PROGYNOVA [Concomitant]
  5. ALVESCO [Concomitant]
  6. XARELTO [Suspect]
     Indication: ATRIAL FIBRILLATION
     Route: 065
  7. PROCORALAN [Concomitant]
  8. ESIDRIX [Concomitant]
  9. INSPRA [Concomitant]
  10. NEXIUM [Concomitant]
  11. ESCITALOPRAM [Concomitant]
  12. NEBIVOLOL HCL [Concomitant]
  13. SPIRIVA [Concomitant]
  14. TORSEMIDE [Concomitant]
  15. SAB SIMPLEX [Concomitant]

REACTIONS (6)
  - LEUKOCYTOCLASTIC VASCULITIS [None]
  - SEPTIC SHOCK [None]
  - HAEMATURIA [None]
  - HENOCH-SCHONLEIN PURPURA [None]
  - RENAL FAILURE ACUTE [None]
  - CLOSTRIDIUM TEST POSITIVE [None]
